FAERS Safety Report 6435694-2 (Version None)
Quarter: 2009Q4

REPORT INFORMATION
  Report Type: 
  Country: None (occurrence: None)
  Receive Date: 20091111
  Receipt Date: 20091030
  Transmission Date: 20100525
  Serious: Yes (Hospitalization)
  Sender: FDA-Public Use
  Company Number: PHEH2009US14840

PATIENT

DRUGS (2)
  1. EXJADE [Suspect]
     Dosage: 1000 MG, QD
     Route: 048
     Dates: start: 20090901, end: 20090930
  2. DIGOXIN [Concomitant]
     Dosage: UNK, UNK
     Route: 065

REACTIONS (1)
  - SICKLE CELL ANAEMIA WITH CRISIS [None]
